FAERS Safety Report 7466334-1 (Version None)
Quarter: 2011Q2

REPORT INFORMATION
  Report Type: 
  Country: None (occurrence: None)
  Receive Date: 20110509
  Receipt Date: 20100802
  Transmission Date: 20111010
  Serious: No
  Sender: FDA-Public Use
  Company Number: US-ALEXION-A201000922

PATIENT
  Sex: Male

DRUGS (6)
  1. LIPITOR [Concomitant]
     Dosage: UNK
     Route: 048
  2. DIOVAN [Concomitant]
     Dosage: UNK
     Route: 048
  3. TIAZAC                             /00489702/ [Concomitant]
     Dosage: UNK
     Route: 048
  4. LANTUS [Concomitant]
     Indication: DIABETES MELLITUS
     Dosage: UNK
  5. SOLIRIS [Suspect]
     Indication: PAROXYSMAL NOCTURNAL HAEMOGLOBINURIA
     Dosage: 600 MG, UNK
     Route: 042
     Dates: start: 20100729
  6. HUMULIN R [Concomitant]
     Indication: DIABETES MELLITUS
     Dosage: UNK

REACTIONS (1)
  - HEADACHE [None]
